FAERS Safety Report 23635304 (Version 3)
Quarter: 2024Q2

REPORT INFORMATION
  Report Type: Spontaneous
  Country: US (occurrence: US)
  Receive Date: 20240315
  Receipt Date: 20240617
  Transmission Date: 20240715
  Serious: No
  Sender: FDA-Public Use
  Company Number: US-Calliditas-2024CAL00395

PATIENT
  Age: 25 Year
  Sex: Male

DRUGS (1)
  1. TARPEYO [Suspect]
     Active Substance: BUDESONIDE
     Indication: IgA nephropathy
     Route: 048
     Dates: start: 20231026

REACTIONS (5)
  - Weight increased [Not Recovered/Not Resolved]
  - Blood pressure increased [Not Recovered/Not Resolved]
  - Skin striae [Not Recovered/Not Resolved]
  - Diarrhoea [Unknown]
  - Glomerular filtration rate decreased [Recovering/Resolving]
